FAERS Safety Report 19237669 (Version 2)
Quarter: 2021Q2

REPORT INFORMATION
  Report Type: Spontaneous
  Country: US (occurrence: US)
  Receive Date: 20210510
  Receipt Date: 20210518
  Transmission Date: 20210717
  Serious: Yes (Life-Threatening)
  Sender: FDA-Public Use
  Company Number: US-SYNEX-T202101994

PATIENT
  Age: 3 Month
  Sex: Female

DRUGS (2)
  1. INOMAX [Suspect]
     Active Substance: NITRIC OXIDE
     Indication: HYPOPLASTIC LEFT HEART SYNDROME
  2. INOMAX [Suspect]
     Active Substance: NITRIC OXIDE
     Indication: PERIPHERAL VASCULAR DISORDER
     Dosage: 20 PPM (INHALATION)
     Route: 065
     Dates: start: 20210429, end: 20210429

REACTIONS (1)
  - Oxygen saturation decreased [Recovered/Resolved]

NARRATIVE: CASE EVENT DATE: 20210429
